FAERS Safety Report 5313372-0 (Version None)
Quarter: 2007Q2

REPORT INFORMATION
  Report Type: 
  Country: None (occurrence: None)
  Receive Date: 20070501
  Receipt Date: 20070427
  Transmission Date: 20071010
  Serious: Yes (Hospitalization)
  Sender: FDA-Public Use
  Company Number: US-BRISTOL-MYERS SQUIBB COMPANY-13763024

PATIENT
  Age: 81 Year
  Sex: Male
  Weight: 109 kg

DRUGS (5)
  1. COUMADIN [Suspect]
     Indication: THROMBOSIS PROPHYLAXIS
  2. AMIODARONE HCL [Concomitant]
  3. DIGITALIS TAB [Concomitant]
  4. OCUVITE [Concomitant]
  5. LIPITOR [Concomitant]

REACTIONS (5)
  - ANURIA [None]
  - ASTHENIA [None]
  - CONTUSION [None]
  - THROMBOSIS [None]
  - VISION BLURRED [None]
